FAERS Safety Report 6902122-X (Version None)
Quarter: 2010Q3

REPORT INFORMATION
  Report Type: 
  Country: None (occurrence: None)
  Receive Date: 20100803
  Receipt Date: 20080416
  Transmission Date: 20110219
  Serious: No
  Sender: FDA-Public Use
  Company Number: US-PFIZER INC-2008034129

PATIENT
  Sex: Male

DRUGS (3)
  1. LYRICA [Suspect]
     Dates: start: 20070101, end: 20080401
  2. PERCOCET [Concomitant]
     Indication: PAIN
  3. MORPHINE [Concomitant]

REACTIONS (5)
  - CIRCUMSTANCE OR INFORMATION CAPABLE OF LEADING TO MEDICATION ERROR [None]
  - DRY MOUTH [None]
  - PAIN [None]
  - TOOTH DISORDER [None]
  - TOOTHACHE [None]
